FAERS Safety Report 14627781 (Version 2)
Quarter: 2018Q1

REPORT INFORMATION
  Report Type: Spontaneous
  Country: JP (occurrence: JP)
  Receive Date: 20180312
  Receipt Date: 20180313
  Transmission Date: 20180509
  Serious: Yes (Hospitalization)
  Sender: FDA-Public Use
  Company Number: JP-JNJFOC-20180311526

PATIENT
  Age: 64 Year
  Sex: Male
  Weight: 55 kg

DRUGS (7)
  1. LASIX [Concomitant]
     Active Substance: FUROSEMIDE
     Route: 065
  2. ALDACTONE-A [Concomitant]
     Active Substance: SPIRONOLACTONE
     Route: 065
  3. AMLODIPINE [Concomitant]
     Active Substance: AMLODIPINE BESYLATE
     Route: 065
  4. XARELTO [Suspect]
     Active Substance: RIVAROXABAN
     Indication: CEREBROVASCULAR ACCIDENT PROPHYLAXIS
     Route: 048
     Dates: start: 201711, end: 20180301
  5. OLMETEC [Concomitant]
     Active Substance: OLMESARTAN MEDOXOMIL
     Route: 065
  6. MAINTATE [Concomitant]
     Active Substance: BISOPROLOL FUMARATE
     Route: 065
  7. XARELTO [Suspect]
     Active Substance: RIVAROXABAN
     Indication: ATRIAL FIBRILLATION
     Route: 048
     Dates: start: 201711, end: 20180301

REACTIONS (2)
  - Blood pressure inadequately controlled [Unknown]
  - Duodenal ulcer haemorrhage [Recovering/Resolving]

NARRATIVE: CASE EVENT DATE: 20180301
